FAERS Safety Report 8266279-3 (Version None)
Quarter: 2012Q1

REPORT INFORMATION
  Report Type: 
  Country: None (occurrence: None)
  Receive Date: 20120327
  Receipt Date: 20100426
  Transmission Date: 20120608
  Serious: Yes (Other)
  Sender: FDA-Public Use
  Company Number: PHHY2010US26918

PATIENT
  Age: 63 Year
  Sex: Female

DRUGS (5)
  1. VITAMINS (NO INGREDIENTS/SUBSTANCES) [Concomitant]
  2. NUTRITIONS (NUTRITION SUPPLEMENTS) [Concomitant]
  3. BABY ASPIRIN (ACETYLSALICYLIC) [Concomitant]
  4. HYDREA [Suspect]
     Dosage: 500  MG, ORAL
     Route: 048
     Dates: start: 20100311, end: 20100325
  5. GLEEVEC [Suspect]
     Indication: CHRONIC MYELOID LEUKAEMIA
     Dosage: 400 MG, QD, ORAL, 200 MG, QD, ORAL
     Route: 048
     Dates: start: 20100326

REACTIONS (2)
  - ANAEMIA [None]
  - HAIR TEXTURE ABNORMAL [None]
